FAERS Safety Report 8601146 (Version 2)
Quarter: 2013Q1

REPORT INFORMATION
  Report Type: Report from Study
  Country: US (occurrence: US)
  Receive Date: 20120606
  Receipt Date: 20130319
  Transmission Date: 20140127
  Serious: Yes (Death, Other)
  Sender: FDA-Public Use
  Company Number: US-ROCHE-1072037

PATIENT
  Sex: 0

DRUGS (3)
  1. BEVACIZUMAB [Suspect]
     Indication: GLIOBLASTOMA MULTIFORME
     Route: 065
  2. TEMOZOLOMIDE [Suspect]
     Indication: GLIOBLASTOMA MULTIFORME
     Route: 065
  3. IRINOTECAN [Suspect]
     Indication: GLIOBLASTOMA MULTIFORME
     Dosage: 125MG/M2 OR 340MG/M2 (IF ON EIAED)
     Route: 065

REACTIONS (11)
  - Pneumocystis jirovecii pneumonia [Fatal]
  - Myocardial infarction [Fatal]
  - Sepsis [Fatal]
  - Pulmonary embolism [Fatal]
  - Deep vein thrombosis [Unknown]
  - Pulmonary embolism [Unknown]
  - Wound dehiscence [Unknown]
  - Intestinal perforation [Unknown]
  - Acute myeloid leukaemia [Unknown]
  - Pneumocystis jirovecii pneumonia [Unknown]
  - Haematotoxicity [Unknown]
